FAERS Safety Report 10047214 (Version 8)
Quarter: 2014Q2

REPORT INFORMATION
  Report Type: Report from Study
  Country: FR (occurrence: FR)
  Receive Date: 20140331
  Receipt Date: 20140630
  Transmission Date: 20141212
  Serious: Yes (Hospitalization)
  Sender: FDA-Public Use
  Company Number: FR-ROCHE-1356407

PATIENT
  Age: 68 Year
  Sex: Female
  Weight: 69 kg

DRUGS (18)
  1. BEVACIZUMAB [Suspect]
     Indication: OVARIAN CANCER
     Route: 065
  2. CARBOPLATIN [Suspect]
     Indication: OVARIAN CANCER
     Dosage: LAST DOSE PRIOR TO SAE ON 05/FEB/2014.
     Route: 065
     Dates: start: 20130718
  3. PACLITAXEL [Suspect]
     Indication: OVARIAN CANCER
     Dosage: LAST DOSE PRIOR TO SAE ON 25/SEP/2013.
     Route: 065
     Dates: start: 20130718
  4. AUGMENTIN [Concomitant]
     Route: 065
     Dates: start: 20130821, end: 20130827
  5. AUGMENTIN [Concomitant]
     Route: 065
     Dates: start: 20140224, end: 201403
  6. TRAMADOL [Concomitant]
  7. ZOPHREN [Concomitant]
     Route: 065
     Dates: start: 20130718, end: 20140204
  8. DEXAMETHASONE [Concomitant]
     Route: 065
     Dates: start: 20130718, end: 20140204
  9. RANITIDINE [Concomitant]
     Route: 065
     Dates: start: 20130718, end: 20140204
  10. POLARAMINE [Concomitant]
     Route: 065
     Dates: start: 20130718, end: 20140204
  11. SANDOSTATINE [Concomitant]
     Route: 065
     Dates: start: 20140108
  12. FLAMMAZINE [Concomitant]
     Route: 065
     Dates: start: 20140128, end: 20140210
  13. FLAMMAZINE [Concomitant]
     Route: 065
     Dates: start: 20130820, end: 20130828
  14. LODOZ [Concomitant]
  15. POLYETHYLENE GLYCOL [Concomitant]
     Route: 065
     Dates: start: 20131119
  16. ATARAX [Concomitant]
     Route: 065
     Dates: start: 20130710, end: 20130710
  17. ZANIDIP [Concomitant]
  18. AMIKACINE [Concomitant]
     Route: 065
     Dates: start: 20140403, end: 2014

REACTIONS (3)
  - Skin ulcer [Recovered/Resolved]
  - Catheter site inflammation [Not Recovered/Not Resolved]
  - Catheter site abscess [Recovered/Resolved]
